FAERS Safety Report 9360763 (Version 1)
Quarter: 2013Q2

REPORT INFORMATION
  Report Type: Spontaneous
  Country: US (occurrence: US)
  Receive Date: 20130621
  Receipt Date: 20130621
  Transmission Date: 20140414
  Serious: Yes (Other)
  Sender: FDA-Public Use
  Company Number: US-ASTRAZENECA-2013SE46785

PATIENT
  Age: 87 Year
  Sex: Female
  Weight: 59 kg

DRUGS (3)
  1. NEXIUM [Suspect]
     Indication: GASTROOESOPHAGEAL REFLUX DISEASE
     Route: 048
     Dates: start: 2010
  2. ATENOLOL [Concomitant]
     Indication: HEART RATE INCREASED
     Dosage: DAILY
     Route: 048
  3. ATIVAN [Concomitant]
     Indication: ANXIETY
     Route: 048

REACTIONS (5)
  - Abscess [Unknown]
  - Decreased appetite [Unknown]
  - Pyrexia [Unknown]
  - Abdominal discomfort [Unknown]
  - Off label use [Unknown]
